FAERS Safety Report 5280097-X (Version None)
Quarter: 2007Q1

REPORT INFORMATION
  Report Type: 
  Country: None (occurrence: None)
  Receive Date: 20070322
  Receipt Date: 20070309
  Transmission Date: 20070707
  Serious: No
  Sender: FDA-Public Use
  Company Number: 2007-155706-NL

PATIENT
  Age: 31 Year
  Sex: Female

DRUGS (2)
  1. NUVARING [Suspect]
     Dosage: DF VAGINAL
     Route: 067
  2. LEVOTHYROXINE SODIUM [Concomitant]

REACTIONS (1)
  - CERVICAL DYSPLASIA [None]
